FAERS Safety Report 18343222 (Version 1)
Quarter: 2020Q4

REPORT INFORMATION
  Report Type: Spontaneous
  Country: US (occurrence: US)
  Receive Date: 20201001
  Receipt Date: 20201001
  Transmission Date: 20210113
  Serious: No
  Sender: FDA-Public Use
  Company Number: None

PATIENT
  Age: 75 Year
  Sex: Female

DRUGS (1)
  1. SILDENAFIL TAB 20MG [Suspect]
     Active Substance: SILDENAFIL
     Route: 048
     Dates: start: 20200903

REACTIONS (2)
  - Ocular hyperaemia [None]
  - Sudden visual loss [None]

NARRATIVE: CASE EVENT DATE: 20200925
